FAERS Safety Report 4713515-3 (Version None)
Quarter: 2005Q3

REPORT INFORMATION
  Report Type: 
  Country: None (occurrence: None)
  Receive Date: 20050711
  Receipt Date: 20050628
  Transmission Date: 20060218
  Serious: Yes (Death, Hospitalization)
  Sender: FDA-Public Use
  Company Number: 2005080588

PATIENT
  Age: 68 Year
  Sex: Male

DRUGS (17)
  1. NEURONTIN [Suspect]
     Indication: NEUROPATHIC PAIN
     Dosage: 900 MG (300 MG,3 IN 1 D),ORAL
     Route: 048
     Dates: start: 20050512, end: 20050520
  2. FLUCONAZOLE [Suspect]
     Indication: ILL-DEFINED DISORDER
  3. ACETAMINOPHEN [Concomitant]
  4. DURAGESIC-100 [Concomitant]
  5. SOLU-MEDROL [Concomitant]
  6. OMEPRAZOLE [Concomitant]
  7. KARDEGIC (ACETYLSALICYLATE LYSINE) [Concomitant]
  8. LASIX [Concomitant]
  9. LOPRESSOR [Concomitant]
  10. CORDARONE [Concomitant]
  11. ZOCOR [Concomitant]
  12. ROCEPHIN [Concomitant]
  13. FLAGYL ^SEARLE^ (METRONIDAZOLE) [Concomitant]
  14. MORPHINE SULFATE [Concomitant]
  15. ZYLORIC ^GLAXO WELLCOME^ (ALLOPURINOL) [Concomitant]
  16. RIVOTRIL (CLONAZEPAM) [Concomitant]
  17. OXYCONTIN [Concomitant]

REACTIONS (5)
  - CHOLESTASIS [None]
  - CYTOLYTIC HEPATITIS [None]
  - DISEASE RECURRENCE [None]
  - NEUROPATHIC PAIN [None]
  - OVERDOSE [None]
